FAERS Safety Report 25117516 (Version 1)
Quarter: 2025Q1

REPORT INFORMATION
  Report Type: Report from Study
  Country: GB (occurrence: GB)
  Receive Date: 20250325
  Receipt Date: 20250325
  Transmission Date: 20250408
  Serious: Yes (Other)
  Sender: MYLAN
  Company Number: GB-MYLANLABS-2025M1025055

PATIENT
  Age: 38 Year
  Sex: Male

DRUGS (2)
  1. GLATIRAMER ACETATE [Suspect]
     Active Substance: GLATIRAMER ACETATE
     Indication: Multiple sclerosis
     Dosage: 40 MILLIGRAM, 3XW (THRICE WEEKLY)
     Dates: start: 20240912
  2. UNSPECIFIED INGREDIENT [Suspect]
     Active Substance: UNSPECIFIED INGREDIENT
     Indication: Multiple sclerosis

REACTIONS (19)
  - Neuropathy peripheral [Unknown]
  - Chromaturia [Unknown]
  - Visual impairment [Unknown]
  - Abdominal pain [Unknown]
  - Muscle spasms [Unknown]
  - Urine odour abnormal [Unknown]
  - Blood urine present [Unknown]
  - Injection site erythema [Recovered/Resolved]
  - Nausea [Unknown]
  - Injection site pain [Unknown]
  - Fatigue [Unknown]
  - Vomiting [Unknown]
  - Chills [Unknown]
  - Injection site inflammation [Recovered/Resolved]
  - Tremor [Unknown]
  - Urine abnormality [Unknown]
  - Drug ineffective [Unknown]
  - Incorrect dose administered by device [Unknown]
  - Device mechanical issue [Unknown]
